FAERS Safety Report 8189906-8 (Version None)
Quarter: 2012Q1

REPORT INFORMATION
  Report Type: 
  Country: None (occurrence: None)
  Receive Date: 20120307
  Receipt Date: 20120226
  Transmission Date: 20120608
  Serious: Yes (Death)
  Sender: FDA-Public Use
  Company Number: ES-SANOFI-AVENTIS-2012SA013143

PATIENT
  Age: 87 Year
  Sex: Female

DRUGS (1)
  1. ENOXAPARIN SODIUM [Suspect]
     Indication: ATRIAL FIBRILLATION
     Route: 058

REACTIONS (12)
  - HYPOVOLAEMIC SHOCK [None]
  - MULTI-ORGAN FAILURE [None]
  - ANURIA [None]
  - RENAL FAILURE ACUTE [None]
  - ATRIAL FIBRILLATION [None]
  - CARDIAC FAILURE CONGESTIVE [None]
  - HYPERCAPNIC ENCEPHALOPATHY [None]
  - INJECTION SITE HAEMATOMA [None]
  - HYPOTENSION [None]
  - ANAEMIA [None]
  - RESPIRATORY FAILURE [None]
  - ABDOMINAL PAIN [None]
